FAERS Safety Report 14281849 (Version 4)
Quarter: 2018Q2

REPORT INFORMATION
  Report Type: Spontaneous
  Country: PR (occurrence: PR)
  Receive Date: 20171213
  Receipt Date: 20180425
  Transmission Date: 20180711
  Serious: No
  Sender: FDA-Public Use
  Company Number: PR-PFIZER INC-2017529293

PATIENT
  Age: 77 Year
  Sex: Female

DRUGS (3)
  1. IBRANCE [Suspect]
     Active Substance: PALBOCICLIB
     Dosage: 75 MG, DAILY
     Route: 048
     Dates: start: 20150514
  2. IBRANCE [Suspect]
     Active Substance: PALBOCICLIB
     Dosage: 75 MG, DAILY
     Route: 048
     Dates: start: 20150514
  3. IBRANCE [Suspect]
     Active Substance: PALBOCICLIB
     Indication: BREAST CANCER FEMALE
     Dosage: 75 MG, DAILY
     Route: 048
     Dates: start: 20150514

REACTIONS (8)
  - Influenza like illness [Unknown]
  - White blood cell count decreased [Unknown]
  - Peripheral swelling [Unknown]
  - Fatigue [Unknown]
  - Tooth loss [Unknown]
  - Ear infection [Unknown]
  - Oropharyngeal pain [Unknown]
  - Dysuria [Unknown]
